FAERS Safety Report 5135573-7 (Version None)
Quarter: 2006Q4

REPORT INFORMATION
  Report Type: 
  Country: None (occurrence: None)
  Receive Date: 20061020
  Receipt Date: 20061010
  Transmission Date: 20070319
  Serious: Yes (Hospitalization)
  Sender: FDA-Public Use
  Company Number: 2005151819

PATIENT
  Age: 77 Year
  Sex: Male
  Weight: 54.5 kg

DRUGS (9)
  1. SUTENT [Suspect]
     Indication: GASTROINTESTINAL STROMAL TUMOUR
     Dosage: SEE IMAGE
     Route: 048
     Dates: start: 20050929, end: 20051020
  2. SUTENT [Suspect]
     Indication: GASTROINTESTINAL STROMAL TUMOUR
     Dosage: SEE IMAGE
     Route: 048
     Dates: start: 20051104, end: 20051107
  3. SUTENT [Suspect]
  4. METOPROLOL TARTRATE [Concomitant]
  5. PRILOSEC [Concomitant]
  6. ZOFRAN [Concomitant]
  7. OXYCODONE HCL [Concomitant]
  8. REGLAN [Concomitant]
  9. AMITRIPTYLINE HCL [Concomitant]

REACTIONS (16)
  - ABDOMINAL PAIN [None]
  - BLOOD PRESSURE INCREASED [None]
  - DISORIENTATION [None]
  - DIZZINESS [None]
  - DRUG INEFFECTIVE [None]
  - DYSPHAGIA [None]
  - DYSPNOEA [None]
  - EARLY SATIETY [None]
  - FALL [None]
  - GAIT DISTURBANCE [None]
  - HEADACHE [None]
  - HYPERLIPIDAEMIA [None]
  - HYPERTENSION [None]
  - NAUSEA [None]
  - NIGHT SWEATS [None]
  - POLLAKIURIA [None]
